FAERS Safety Report 15096083 (Version 9)
Quarter: 2023Q2

REPORT INFORMATION
  Report Type: Spontaneous
  Country: DE (occurrence: DE)
  Receive Date: 20180702
  Receipt Date: 20230614
  Transmission Date: 20230722
  Serious: Yes (Other)
  Sender: FDA-Public Use
  Company Number: DE-BRISTOL-MYERS SQUIBB COMPANY-BMS-2018-059197

PATIENT
  Age: 68 Year
  Sex: Male

DRUGS (12)
  1. YERVOY [Suspect]
     Active Substance: IPILIMUMAB
     Indication: Neuroendocrine tumour
     Dosage: 70 MILLIGRAM, Q4WK
     Dates: start: 200411, end: 201606
  2. YERVOY [Suspect]
     Active Substance: IPILIMUMAB
     Dosage: 70 MILLIGRAM, Q4WK
     Dates: start: 20140402
  3. YERVOY [Suspect]
     Active Substance: IPILIMUMAB
     Dates: start: 201704, end: 201910
  4. KEYTRUDA [Suspect]
     Active Substance: PEMBROLIZUMAB
     Indication: Neuroendocrine tumour
     Dosage: 150 MILLIGRAM, Q3WK
     Dates: start: 20141109, end: 201606
  5. KEYTRUDA [Suspect]
     Active Substance: PEMBROLIZUMAB
     Dosage: UNK
     Dates: start: 201704, end: 201910
  6. ATEZOLIZUMAB [Suspect]
     Active Substance: ATEZOLIZUMAB
     Indication: Neuroendocrine tumour
     Dates: start: 201608
  7. SANDOSTATIN [Concomitant]
     Active Substance: OCTREOTIDE ACETATE
     Indication: Product used for unknown indication
     Dosage: LAR 30 MG EVERY 28 DAYS
     Dates: start: 20120204
  8. SANDOSTATIN [Concomitant]
     Active Substance: OCTREOTIDE ACETATE
     Dosage: LAR 30 MG EVERY 28 DAYS
     Dates: start: 201411, end: 201606
  9. SANDOSTATIN [Concomitant]
     Active Substance: OCTREOTIDE ACETATE
     Dosage: LAR 30 MG EVERY 28 DAYS
     Dates: start: 20140911
  10. OCTREOTIDE [Concomitant]
     Active Substance: OCTREOTIDE
     Indication: Product used for unknown indication
     Dates: start: 201010
  11. TEMOZOLOMIDE [Concomitant]
     Active Substance: TEMOZOLOMIDE
     Indication: Product used for unknown indication
  12. CAPECITABINE [Concomitant]
     Active Substance: CAPECITABINE
     Indication: Product used for unknown indication
     Route: 048

REACTIONS (7)
  - Facial paralysis [Recovered/Resolved]
  - Colitis [Recovered/Resolved]
  - Pneumonitis [Not Recovered/Not Resolved]
  - Sjogren^s syndrome [Recovered/Resolved]
  - Thyroiditis [Recovered/Resolved]
  - Pharyngitis [Recovered/Resolved]
  - Intentional product use issue [Unknown]
